FAERS Safety Report 6961866-4 (Version None)
Quarter: 2010Q3

REPORT INFORMATION
  Report Type: 
  Country: None (occurrence: None)
  Receive Date: 20100902
  Receipt Date: 20100824
  Transmission Date: 20110219
  Serious: Yes (Hospitalization)
  Sender: FDA-Public Use
  Company Number: US-BIOGENIDEC-2010BI029570

PATIENT
  Age: 66 Year
  Sex: Female

DRUGS (2)
  1. AVONEX [Suspect]
     Indication: MULTIPLE SCLEROSIS
     Route: 030
     Dates: start: 20000701
  2. COPAXONE [Concomitant]
     Indication: MULTIPLE SCLEROSIS

REACTIONS (6)
  - ABASIA [None]
  - ANAEMIA [None]
  - CYSTITIS [None]
  - KIDNEY INFECTION [None]
  - NEPHROLITHIASIS [None]
  - ULCER HAEMORRHAGE [None]
